FAERS Safety Report 6466285-5 (Version None)
Quarter: 2009Q4

REPORT INFORMATION
  Report Type: 
  Country: None (occurrence: None)
  Receive Date: 20091202
  Receipt Date: 20091127
  Transmission Date: 20100525
  Serious: Yes (Death)
  Sender: FDA-Public Use
  Company Number: PHEH2009US16825

PATIENT
  Sex: Female

DRUGS (1)
  1. EXJADE [Suspect]
     Indication: LYMPHOPROLIFERATIVE DISORDER
     Dosage: 1375 MG, QD
     Route: 048
     Dates: start: 20090601

REACTIONS (2)
  - LEUKAEMIA [None]
  - LUNG NEOPLASM [None]
